FAERS Safety Report 18932061 (Version 2)
Quarter: 2021Q1

REPORT INFORMATION
  Report Type: Report from Study
  Country: CH (occurrence: CH)
  Receive Date: 20210223
  Receipt Date: 20210303
  Transmission Date: 20210420
  Serious: Yes (Hospitalization, Other)
  Sender: FDA-Public Use
  Company Number: CH-BAXTER-2021BAX003212

PATIENT
  Age: 69 Year
  Sex: Male

DRUGS (106)
  1. UROMITEXAN 400 ML, LOSUNG ZUR INTRAVENOSEN ANWENDUNG [Suspect]
     Active Substance: MESNA
     Route: 042
     Dates: start: 20210109, end: 20210109
  2. PALONOSETRON. [Concomitant]
     Active Substance: PALONOSETRON HYDROCHLORIDE
     Indication: CHEMOTHERAPY SIDE EFFECT PROPHYLAXIS
     Route: 042
     Dates: start: 20210106, end: 20210106
  3. ONDANSETRON [Concomitant]
     Active Substance: ONDANSETRON
     Route: 048
     Dates: start: 20210113, end: 20210114
  4. AMIODARONE [Concomitant]
     Active Substance: AMIODARONE
     Route: 042
     Dates: start: 20210124, end: 20210124
  5. GLUCOSE 5% [Concomitant]
     Active Substance: DEXTROSE
     Indication: RENAL FAILURE
     Dosage: CONTINUOUSLY
     Route: 042
     Dates: start: 20210110, end: 20210110
  6. METOCLOPRAMIDE. [Concomitant]
     Active Substance: METOCLOPRAMIDE
     Indication: NAUSEA
     Route: 042
     Dates: start: 20210111, end: 20210111
  7. PETHIDINE [Concomitant]
     Active Substance: MEPERIDINE
     Indication: CHILLS
     Route: 042
     Dates: start: 20210113, end: 20210114
  8. ESOMEPRAZOLE. [Concomitant]
     Active Substance: ESOMEPRAZOLE MAGNESIUM
     Indication: GASTRIC ULCER
     Route: 042
     Dates: start: 20210115, end: 20210115
  9. LEVOTHYROXINE. [Concomitant]
     Active Substance: LEVOTHYROXINE
     Route: 048
     Dates: start: 20210112, end: 20210119
  10. FUROSEMIDE. [Concomitant]
     Active Substance: FUROSEMIDE
     Indication: CAPILLARY LEAK SYNDROME
     Route: 042
     Dates: start: 20210124, end: 20210124
  11. DIGOXINE [Concomitant]
     Active Substance: DIGOXIN
     Indication: ATRIAL FIBRILLATION
     Route: 042
     Dates: start: 20210126, end: 20210126
  12. METHYLPREDNISOLONE. [Concomitant]
     Active Substance: METHYLPREDNISOLONE
     Route: 042
     Dates: start: 20210201, end: 20210201
  13. TOCILIZUMAB. [Concomitant]
     Active Substance: TOCILIZUMAB
     Indication: PRODUCT USED FOR UNKNOWN INDICATION
     Route: 042
     Dates: start: 20210129, end: 20210129
  14. VANCOMYCINE [Concomitant]
     Active Substance: VANCOMYCIN
     Route: 042
     Dates: start: 20210115, end: 20210115
  15. APIXABAN [Concomitant]
     Active Substance: APIXABAN
     Indication: ATRIAL FIBRILLATION
     Route: 048
     Dates: start: 20210205, end: 20210210
  16. ATOVAQUONE. [Concomitant]
     Active Substance: ATOVAQUONE
     Indication: INFECTION PROPHYLAXIS
     Route: 048
  17. FIDAXOMICIN [Concomitant]
     Active Substance: FIDAXOMICIN
     Indication: ENTEROCOLITIS INFECTIOUS
     Route: 048
  18. POTASSIUM CHLORIDE. [Concomitant]
     Active Substance: POTASSIUM CHLORIDE
     Indication: PROPHYLAXIS
     Route: 048
     Dates: start: 20210108, end: 20210109
  19. MAGNESIUM SULFATE. [Concomitant]
     Active Substance: MAGNESIUM SULFATE
     Indication: ATRIAL FIBRILLATION
     Route: 042
     Dates: start: 20210109, end: 20210109
  20. LACTATED RINGERS SOLUTION [Concomitant]
     Active Substance: CALCIUM CHLORIDE\POTASSIUM CHLORIDE\SODIUM CHLORIDE\SODIUM LACTATE
     Route: 042
     Dates: start: 20210111, end: 20210111
  21. LEVOFLOXACIN. [Concomitant]
     Active Substance: LEVOFLOXACIN
     Route: 042
     Dates: start: 20210113, end: 20210115
  22. LEVOFLOXACIN. [Concomitant]
     Active Substance: LEVOFLOXACIN
     Route: 048
     Dates: start: 20210115, end: 20210118
  23. NORADRENALINE [Concomitant]
     Active Substance: NOREPINEPHRINE
     Indication: ATRIAL FIBRILLATION
     Dosage: CONTINUOUSLY
     Route: 042
     Dates: start: 20210114, end: 20210115
  24. ESOMEPRAZOLE. [Concomitant]
     Active Substance: ESOMEPRAZOLE MAGNESIUM
     Route: 048
     Dates: start: 20210117, end: 20210125
  25. ESOMEPRAZOLE. [Concomitant]
     Active Substance: ESOMEPRAZOLE MAGNESIUM
     Route: 042
     Dates: start: 20210125, end: 20210128
  26. VASELINE PURE [Concomitant]
     Active Substance: PETROLATUM
     Indication: RASH MACULO-PAPULAR
     Route: 061
     Dates: start: 20210120, end: 20210122
  27. LORAZEPAM. [Concomitant]
     Active Substance: LORAZEPAM
     Indication: ANXIETY
     Route: 048
     Dates: start: 20210122, end: 20210122
  28. OXYCODONE [Concomitant]
     Active Substance: OXYCODONE
     Route: 048
     Dates: start: 20210116, end: 20210124
  29. HEPARIN [Concomitant]
     Active Substance: HEPARIN SODIUM
     Indication: THROMBOSIS PROPHYLAXIS
     Dosage: CONTINUOUSLY
     Route: 042
     Dates: start: 20210126, end: 20210128
  30. HEPARIN [Concomitant]
     Active Substance: HEPARIN SODIUM
     Dosage: CONTINUOUSLY
     Route: 042
     Dates: start: 20210202
  31. TETRACOSACTIDE [Concomitant]
     Active Substance: COSYNTROPIN
     Indication: ACTH STIMULATION TEST
     Route: 042
     Dates: start: 20210126, end: 20210126
  32. ENDOXAN 1 G. TROCKENSUBSTANZ ZUR INTRAVENOSEN INFUSION [Suspect]
     Active Substance: CYCLOPHOSPHAMIDE
     Indication: METASTATIC MALIGNANT MELANOMA
     Dosage: 2 DOSES IN TOTAL
     Route: 042
     Dates: start: 20210106, end: 20210107
  33. OLANZAPINE. [Concomitant]
     Active Substance: OLANZAPINE
     Indication: PROPHYLAXIS OF NAUSEA AND VOMITING
     Route: 048
     Dates: start: 20210107, end: 20210107
  34. CEFTRIAXONE. [Concomitant]
     Active Substance: CEFTRIAXONE
     Indication: SEPSIS
     Route: 042
     Dates: start: 20210108, end: 20210108
  35. AMIODARONE [Concomitant]
     Active Substance: AMIODARONE
     Indication: ATRIAL FIBRILLATION
     Dosage: CONTINUOUSLY
     Route: 042
     Dates: start: 20210109, end: 20210111
  36. AMIODARONE [Concomitant]
     Active Substance: AMIODARONE
     Route: 042
     Dates: start: 20210119, end: 20210120
  37. TORASEMIDE [Concomitant]
     Active Substance: TORSEMIDE
     Route: 048
     Dates: start: 20210121, end: 20210123
  38. CLEMASTINE [Concomitant]
     Active Substance: CLEMASTINE
     Indication: PREMEDICATION
     Dosage: 3 DOSES IN TOTAL
     Route: 048
     Dates: start: 20210112, end: 20210114
  39. NORADRENALINE [Concomitant]
     Active Substance: NOREPINEPHRINE
     Indication: HYPOTENSION
     Route: 042
     Dates: start: 20210126, end: 20210127
  40. TROSPIUM [Concomitant]
     Active Substance: TROSPIUM
     Indication: HAEMATURIA
     Route: 048
     Dates: start: 20210114, end: 20210117
  41. VALACICLOVIR [Concomitant]
     Active Substance: VALACYCLOVIR HYDROCHLORIDE
     Indication: CYTOMEGALOVIRUS INFECTION REACTIVATION
     Route: 048
     Dates: start: 20210116, end: 20210123
  42. OXYCODONE [Concomitant]
     Active Substance: OXYCODONE
     Indication: BACK PAIN
     Route: 048
     Dates: start: 20210115, end: 20210115
  43. OXYCODONE [Concomitant]
     Active Substance: OXYCODONE
     Route: 048
     Dates: start: 20210124, end: 20210125
  44. FUROSEMIDE. [Concomitant]
     Active Substance: FUROSEMIDE
     Route: 042
     Dates: start: 20210131
  45. PREDNISONE. [Concomitant]
     Active Substance: PREDNISONE
     Indication: PRODUCT USED FOR UNKNOWN INDICATION
     Route: 048
     Dates: start: 20210202
  46. PEGFILGRASTIM [Concomitant]
     Active Substance: PEGFILGRASTIM
     Indication: PRODUCT USED FOR UNKNOWN INDICATION
     Route: 058
     Dates: start: 20210113, end: 20210113
  47. FOSAPREPITANT [Concomitant]
     Active Substance: FOSAPREPITANT
     Indication: CHEMOTHERAPY SIDE EFFECT PROPHYLAXIS
     Route: 042
     Dates: start: 20210106, end: 20210106
  48. VALGANCICLOVIR. [Concomitant]
     Active Substance: VALGANCICLOVIR
     Indication: CYTOMEGALOVIRUS INFECTION REACTIVATION
     Route: 048
     Dates: start: 20210218
  49. UROMITEXAN 400 ML, LOSUNG ZUR INTRAVENOSEN ANWENDUNG [Suspect]
     Active Substance: MESNA
     Indication: CYSTITIS NONINFECTIVE
     Route: 042
     Dates: start: 20210106, end: 20210107
  50. TORASEMIDE [Concomitant]
     Active Substance: TORSEMIDE
     Route: 048
     Dates: start: 20210210, end: 20210211
  51. LEVOTHYROXINE. [Concomitant]
     Active Substance: LEVOTHYROXINE
     Indication: LYMPHOCYTIC HYPOPHYSITIS
     Route: 048
     Dates: start: 20200601, end: 20210112
  52. HEPARIN [Concomitant]
     Active Substance: HEPARIN SODIUM
     Dosage: CONTINUOUSLY
     Route: 042
     Dates: start: 20210128, end: 20210202
  53. METHYLPREDNISOLONE. [Concomitant]
     Active Substance: METHYLPREDNISOLONE
     Indication: PRODUCT USED FOR UNKNOWN INDICATION
     Route: 042
     Dates: start: 20210129, end: 20210129
  54. CLOMETIAZOLE [Concomitant]
     Active Substance: CLOMETHIAZOLE
     Indication: RENAL FAILURE
     Route: 048
     Dates: start: 20210112, end: 20210112
  55. METOPROLOL. [Concomitant]
     Active Substance: METOPROLOL
     Indication: ATRIAL FIBRILLATION
     Route: 065
     Dates: start: 20210204, end: 20210204
  56. POTASSIUM CHLORIDE. [Concomitant]
     Active Substance: POTASSIUM CHLORIDE
     Dosage: CONTINUOUSLY
     Route: 042
     Dates: start: 20210128, end: 20210128
  57. SYNACTHEN [Concomitant]
     Indication: ACTH STIMULATION TEST
     Route: 042
     Dates: start: 20210108, end: 20210108
  58. ACETAMINOPHEN. [Concomitant]
     Active Substance: ACETAMINOPHEN
     Indication: BLADDER SPASM
     Route: 048
     Dates: start: 20210116, end: 20210125
  59. AMIODARONE [Concomitant]
     Active Substance: AMIODARONE
     Route: 048
     Dates: start: 20210113, end: 20210123
  60. LACTATED RINGERS SOLUTION [Concomitant]
     Active Substance: CALCIUM CHLORIDE\POTASSIUM CHLORIDE\SODIUM CHLORIDE\SODIUM LACTATE
     Route: 042
     Dates: start: 20210126, end: 20210126
  61. MEROPENEM. [Concomitant]
     Active Substance: MEROPENEM
     Indication: SEPSIS
     Route: 042
     Dates: start: 20210115, end: 20210115
  62. MEROPENEM. [Concomitant]
     Active Substance: MEROPENEM
     Route: 042
     Dates: start: 20210115, end: 20210119
  63. CASPOFUNGINE [Concomitant]
     Active Substance: CASPOFUNGIN
     Indication: FUNGAEMIA
     Route: 042
     Dates: start: 20210116, end: 20210116
  64. LEVOFLOXACIN. [Concomitant]
     Active Substance: LEVOFLOXACIN
     Indication: PROPHYLAXIS
     Route: 042
     Dates: start: 20210113, end: 20210113
  65. OXYCODONE [Concomitant]
     Active Substance: OXYCODONE
     Indication: BLADDER SPASM
     Route: 048
     Dates: start: 20210115, end: 20210116
  66. POTASSIUM CHLORIDE. [Concomitant]
     Active Substance: POTASSIUM CHLORIDE
     Route: 042
     Dates: start: 20210108, end: 20210110
  67. ACETAMINOPHEN. [Concomitant]
     Active Substance: ACETAMINOPHEN
     Indication: SCIATICA
     Route: 048
     Dates: start: 20200101
  68. ACETAMINOPHEN. [Concomitant]
     Active Substance: ACETAMINOPHEN
     Indication: BACK PAIN
     Route: 048
     Dates: start: 20210109, end: 20210111
  69. AMIODARONE [Concomitant]
     Active Substance: AMIODARONE
     Route: 048
     Dates: start: 20210111, end: 20210113
  70. MEROPENEM. [Concomitant]
     Active Substance: MEROPENEM
     Route: 042
     Dates: start: 20210126, end: 20210128
  71. TROSPIUM [Concomitant]
     Active Substance: TROSPIUM
     Indication: BLADDER SPASM
     Route: 048
     Dates: start: 20210117, end: 20210119
  72. TROSPIUM [Concomitant]
     Active Substance: TROSPIUM
     Route: 048
     Dates: start: 20210122, end: 20210125
  73. COLECALCIFEROL [Concomitant]
     Active Substance: CHOLECALCIFEROL
     Indication: PRODUCT USED FOR UNKNOWN INDICATION
     Route: 048
     Dates: start: 20210124, end: 20210125
  74. METHYLPREDNISOLONE. [Concomitant]
     Active Substance: METHYLPREDNISOLONE
     Route: 042
     Dates: start: 20210130, end: 20210131
  75. METHYLPREDNISOLONE. [Concomitant]
     Active Substance: METHYLPREDNISOLONE
     Dosage: CONTINUOUSLY
     Route: 042
     Dates: start: 20210126, end: 20210128
  76. UROMITEXAN 400 ML, LOSUNG ZUR INTRAVENOSEN ANWENDUNG [Suspect]
     Active Substance: MESNA
     Route: 042
     Dates: start: 20210106, end: 20210107
  77. UROMITEXAN 400 ML, LOSUNG ZUR INTRAVENOSEN ANWENDUNG [Suspect]
     Active Substance: MESNA
     Route: 042
     Dates: start: 20210109, end: 20210112
  78. ONDANSETRON [Concomitant]
     Active Substance: ONDANSETRON
     Indication: PROPHYLAXIS OF NAUSEA AND VOMITING
     Route: 048
     Dates: start: 20210120, end: 20210120
  79. ONDANSETRON [Concomitant]
     Active Substance: ONDANSETRON
     Dosage: CONTINUOUSLY
     Route: 042
     Dates: start: 20210128, end: 20210128
  80. METRONIDAZOLE. [Concomitant]
     Active Substance: METRONIDAZOLE
     Indication: SEPSIS
     Route: 042
     Dates: start: 20210108, end: 20210109
  81. PIPERACILLIN AND TAZOBACTAM [Concomitant]
     Active Substance: PIPERACILLIN SODIUM\TAZOBACTAM SODIUM
     Indication: SEPSIS
     Route: 048
     Dates: start: 20210109, end: 20210114
  82. ACETAMINOPHEN. [Concomitant]
     Active Substance: ACETAMINOPHEN
     Route: 042
     Dates: start: 20210125, end: 20210127
  83. LEVOTHYROXINE. [Concomitant]
     Active Substance: LEVOTHYROXINE
     Route: 048
     Dates: start: 20210119, end: 20210126
  84. HEPARIN [Concomitant]
     Active Substance: HEPARIN SODIUM
     Dosage: CONTINUOUSLY
     Route: 042
     Dates: start: 20210202, end: 20210202
  85. INSULIN [Concomitant]
     Active Substance: INSULIN NOS
     Indication: HYPERGLYCAEMIA
     Dosage: CONTINUOUSLY
     Route: 042
     Dates: start: 20210126, end: 20210128
  86. VANCOMYCINE [Concomitant]
     Active Substance: VANCOMYCIN
     Indication: PRODUCT USED FOR UNKNOWN INDICATION
     Route: 042
     Dates: start: 20210115, end: 20210115
  87. CEFEPIME [Concomitant]
     Active Substance: CEFEPIME HYDROCHLORIDE
     Indication: SEPSIS
     Route: 042
     Dates: start: 20210120, end: 20210125
  88. FLUDARABINE [Suspect]
     Active Substance: FLUDARABINE PHOSPHATE
     Indication: METASTATIC MALIGNANT MELANOMA
     Dosage: 3 DOSES IN TOTAL
     Route: 042
     Dates: start: 20210106, end: 20210108
  89. ONDANSETRON [Concomitant]
     Active Substance: ONDANSETRON
     Route: 048
     Dates: start: 20210122, end: 20210124
  90. IBUPROFEN. [Concomitant]
     Active Substance: IBUPROFEN
     Indication: SEPSIS
     Route: 048
     Dates: start: 20210108, end: 20210108
  91. LOPERAMIDE [Concomitant]
     Active Substance: LOPERAMIDE
     Indication: DIARRHOEA
     Route: 048
     Dates: start: 20210109, end: 20210109
  92. LACTATED RINGERS SOLUTION [Concomitant]
     Active Substance: CALCIUM CHLORIDE\POTASSIUM CHLORIDE\SODIUM CHLORIDE\SODIUM LACTATE
     Indication: HYPOTENSION
     Route: 042
     Dates: start: 20210109, end: 20210111
  93. LACTATED RINGERS SOLUTION [Concomitant]
     Active Substance: CALCIUM CHLORIDE\POTASSIUM CHLORIDE\SODIUM CHLORIDE\SODIUM LACTATE
     Route: 042
     Dates: start: 20210114, end: 20210116
  94. TORASEMIDE [Concomitant]
     Active Substance: TORSEMIDE
     Indication: WEIGHT INCREASED
     Route: 048
     Dates: start: 20210111, end: 20210112
  95. TORASEMIDE [Concomitant]
     Active Substance: TORSEMIDE
     Indication: CAPILLARY LEAK SYNDROME
     Route: 048
     Dates: start: 20210118, end: 20210121
  96. CASPOFUNGINE [Concomitant]
     Active Substance: CASPOFUNGIN
     Route: 042
     Dates: start: 20210116, end: 20210129
  97. ESOMEPRAZOLE. [Concomitant]
     Active Substance: ESOMEPRAZOLE MAGNESIUM
     Route: 048
     Dates: start: 20210128
  98. VASELINE PURE [Concomitant]
     Active Substance: PETROLATUM
     Route: 061
     Dates: start: 20210122, end: 20210125
  99. VALACICLOVIR [Concomitant]
     Active Substance: VALACYCLOVIR HYDROCHLORIDE
     Indication: INFECTION PROPHYLAXIS
     Route: 048
     Dates: start: 20210112, end: 20210114
  100. VALACICLOVIR [Concomitant]
     Active Substance: VALACYCLOVIR HYDROCHLORIDE
     Route: 048
     Dates: start: 20210123, end: 20210125
  101. VALACICLOVIR [Concomitant]
     Active Substance: VALACYCLOVIR HYDROCHLORIDE
     Route: 048
     Dates: start: 20210202, end: 20210205
  102. FUROSEMIDE. [Concomitant]
     Active Substance: FUROSEMIDE
     Route: 042
     Dates: start: 20210126, end: 20210130
  103. DIGOXINE [Concomitant]
     Active Substance: DIGOXIN
     Route: 042
     Dates: start: 20210126, end: 20210126
  104. CLOMETIAZOLE [Concomitant]
     Active Substance: CLOMETHIAZOLE
     Route: 048
     Dates: start: 20210112, end: 20210112
  105. METHYLTHIONINIUM CHLORIDE [Concomitant]
     Active Substance: METHYLENE BLUE
     Indication: PRODUCT USED FOR UNKNOWN INDICATION
     Route: 042
     Dates: start: 20210113, end: 20210114
  106. BACTRIM [Concomitant]
     Active Substance: SULFAMETHOXAZOLE\TRIMETHOPRIM
     Indication: INFECTION PROPHYLAXIS
     Route: 048
     Dates: start: 20210205, end: 20210212

REACTIONS (1)
  - Cytokine release syndrome [Recovered/Resolved]

NARRATIVE: CASE EVENT DATE: 20210125
